FAERS Safety Report 15801575 (Version 2)
Quarter: 2019Q1

REPORT INFORMATION
  Report Type: Spontaneous
  Country: CA (occurrence: CA)
  Receive Date: 20190109
  Receipt Date: 20190115
  Transmission Date: 20190417
  Serious: Yes (Other)
  Sender: FDA-Public Use
  Company Number: CA-MYLANLABS-2019M1000961

PATIENT
  Age: 34 Year
  Weight: 77.11 kg

DRUGS (1)
  1. INDAYO [Suspect]
     Active Substance: ETHINYL ESTRADIOL\LEVONORGESTREL
     Indication: DYSMENORRHOEA
     Dosage: 1 DOSAGE FORM, QD
     Route: 048

REACTIONS (7)
  - Acne [Recovering/Resolving]
  - Weight increased [Recovering/Resolving]
  - Dysphagia [Recovering/Resolving]
  - Abdominal discomfort [Recovering/Resolving]
  - Mood swings [Recovering/Resolving]
  - Product physical issue [Recovering/Resolving]
  - Product substitution issue [Recovering/Resolving]
